FAERS Safety Report 16757354 (Version 1)
Quarter: 2019Q3

REPORT INFORMATION
  Report Type: Spontaneous
  Country: FR (occurrence: FR)
  Receive Date: 20190829
  Receipt Date: 20190829
  Transmission Date: 20191005
  Serious: Yes (Hospitalization)
  Sender: FDA-Public Use
  Company Number: FR-009507513-1908FRA009709

PATIENT
  Age: 69 Year
  Sex: Male

DRUGS (7)
  1. CHIBRO-PROSCAR [Suspect]
     Active Substance: FINASTERIDE
     Indication: BENIGN PROSTATIC HYPERPLASIA
     Dosage: 5 MILLIGRAM, QD
     Route: 048
     Dates: start: 20180619
  2. UVEDOSE [Concomitant]
     Active Substance: CHOLECALCIFEROL
  3. BI-PROFENID [Concomitant]
     Active Substance: KETOPROFEN
  4. CACIT VITAMINE D3 [Concomitant]
     Active Substance: CALCIUM CARBONATE\CHOLECALCIFEROL
  5. LEVOTHYROX [Concomitant]
     Active Substance: LEVOTHYROXINE
  6. PARIET [Concomitant]
     Active Substance: RABEPRAZOLE SODIUM
  7. LEVOTHYROX [Concomitant]
     Active Substance: LEVOTHYROXINE

REACTIONS (1)
  - Dizziness [Not Recovered/Not Resolved]

NARRATIVE: CASE EVENT DATE: 20190430
